FAERS Safety Report 5608688-4 (Version None)
Quarter: 2008Q1

REPORT INFORMATION
  Report Type: 
  Country: None (occurrence: None)
  Receive Date: 20080131
  Receipt Date: 20080118
  Transmission Date: 20080703
  Serious: Yes (Hospitalization, Other)
  Sender: FDA-Public Use
  Company Number: PFIZER INC-2008008256

PATIENT
  Sex: Female
  Weight: 49.9 kg

DRUGS (2)
  1. DEPO-PROVERA SUSPENSION/INJ [Suspect]
     Indication: CONTRACEPTION
     Dosage: TEXT:EVERY THREE MONTHS
  2. ORTHO EVRA [Suspect]
     Route: 062
     Dates: start: 20030701, end: 20030101

REACTIONS (1)
  - MYOCARDIAL INFARCTION [None]
